FAERS Safety Report 4783983-X (Version None)
Quarter: 2005Q3

REPORT INFORMATION
  Report Type: 
  Country: None (occurrence: None)
  Receive Date: 20050927
  Receipt Date: 20050805
  Transmission Date: 20060218
  Serious: No
  Sender: FDA-Public Use
  Company Number: USA0508104778

PATIENT
  Age: 29 Year
  Sex: Female
  Weight: 81 kg

DRUGS (2)
  1. STRATTERA [Suspect]
     Indication: ATTENTION DEFICIT/HYPERACTIVITY DISORDER
     Dosage: 40 MG DAY
     Dates: start: 20050501
  2. ADDERALL 10 [Concomitant]

REACTIONS (4)
  - AGGRESSION [None]
  - ANGER [None]
  - CONSTIPATION [None]
  - DYSMENORRHOEA [None]
